FAERS Safety Report 8583466-5 (Version None)
Quarter: 2012Q3

REPORT INFORMATION
  Report Type: 
  Country: None (occurrence: None)
  Receive Date: 20120809
  Receipt Date: 20120731
  Transmission Date: 20120928
  Serious: Yes (Hospitalization, Other)
  Sender: FDA-Public Use
  Company Number: US-ROCHE-1079339

PATIENT
  Sex: Female

DRUGS (8)
  1. SIMVASTATIN [Concomitant]
     Indication: BLOOD CHOLESTEROL INCREASED
     Route: 048
  2. RITUXAN [Suspect]
     Indication: WEGENER'S GRANULOMATOSIS
     Route: 042
     Dates: start: 20060101
  3. PREDNISONE TAB [Suspect]
     Dates: start: 20111130
  4. PREDNISONE TAB [Suspect]
     Indication: VASCULITIS
     Dosage: DOSE-VARIABLE. DOSE STARTED YEARS AGO
     Route: 048
  5. CELLCEPT [Concomitant]
  6. RITUXAN [Suspect]
     Indication: VASCULITIS
     Route: 042
     Dates: start: 20110825, end: 20110916
  7. LISINOPRIL [Concomitant]
     Indication: HYPERTENSION
     Route: 048
  8. METFORMIN HYDROCHLORIDE [Concomitant]
     Indication: DIABETES MELLITUS
     Route: 048

REACTIONS (8)
  - DIABETES MELLITUS [None]
  - CONDITION AGGRAVATED [None]
  - PNEUMONIA [None]
  - HYPERTENSION [None]
  - DRUG INEFFECTIVE [None]
  - DYSPEPSIA [None]
  - CHRONIC OBSTRUCTIVE PULMONARY DISEASE [None]
  - OEDEMA PERIPHERAL [None]
